FAERS Safety Report 14134674 (Version 1)
Quarter: 2017Q4

REPORT INFORMATION
  Report Type: Report from Study
  Country: CA (occurrence: CA)
  Receive Date: 20171027
  Receipt Date: 20171027
  Transmission Date: 20180321
  Serious: Yes (Other)
  Sender: FDA-Public Use
  Company Number: CA-JNJFOC-20170911744

PATIENT
  Age: 79 Year
  Sex: Female
  Weight: 75 kg

DRUGS (2)
  1. REMICADE [Suspect]
     Active Substance: INFLIXIMAB
     Indication: COLITIS ULCERATIVE
     Route: 042
     Dates: start: 20170731
  2. REMICADE [Suspect]
     Active Substance: INFLIXIMAB
     Indication: COLITIS ULCERATIVE
     Route: 042
     Dates: start: 20170830

REACTIONS (8)
  - Peripheral swelling [Recovering/Resolving]
  - Skin lesion [Recovered/Resolved]
  - Skin cancer [Unknown]
  - Off label use [Unknown]
  - Muscle twitching [Unknown]
  - Rash [Not Recovered/Not Resolved]
  - Product use issue [Unknown]
  - Cyst [Unknown]

NARRATIVE: CASE EVENT DATE: 2017
